FAERS Safety Report 11870128 (Version 1)
Quarter: 2015Q4

REPORT INFORMATION
  Report Type: Spontaneous
  Country: US (occurrence: None)
  Receive Date: 20151224
  Receipt Date: 20151224
  Transmission Date: 20160305
  Serious: No
  Sender: FDA-Public Use
  Company Number: None

PATIENT
  Age: 20 Year
  Sex: Female

DRUGS (15)
  1. CEFTAZIDIME. [Concomitant]
     Active Substance: CEFTAZIDIME
  2. CETIRIZINE [Concomitant]
     Active Substance: CETIRIZINE HYDROCHLORIDE
  3. MONTELUKAST [Concomitant]
     Active Substance: MONTELUKAST SODIUM
  4. CHOLECALCIFEROL [Concomitant]
     Active Substance: CHOLECALCIFEROL
  5. LIDOCAINE. [Concomitant]
     Active Substance: LIDOCAINE
  6. URSODIAL [Concomitant]
  7. METOCLOPRAMIDE. [Concomitant]
     Active Substance: METOCLOPRAMIDE
  8. DOCUSATE [Concomitant]
     Active Substance: DOCUSATE
  9. POLYETHYLENE GLYCOL 3350. [Concomitant]
     Active Substance: POLYETHYLENE GLYCOL 3350
  10. NPH INSULIN [Suspect]
     Active Substance: INSULIN BEEF
     Indication: HYPERGLYCAEMIA
     Dosage: 5 UNITS NPH AT BEDTIME  SC
     Route: 058
     Dates: start: 20150703
  11. NPH INSULIN [Suspect]
     Active Substance: INSULIN BEEF
     Dosage: 2 UNITS NPH WITH LUNCH DAILY SC
     Route: 058
  12. MAGNESIUM HYDROXIDE. [Concomitant]
     Active Substance: MAGNESIUM HYDROXIDE
  13. FAMOTIDINE. [Concomitant]
     Active Substance: FAMOTIDINE
  14. ONDANSETRON [Concomitant]
     Active Substance: ONDANSETRON
  15. PANCREALIPASE [Concomitant]
     Active Substance: PANCRELIPASE

REACTIONS (3)
  - Cystic fibrosis [None]
  - Condition aggravated [None]
  - Hypoglycaemia [None]

NARRATIVE: CASE EVENT DATE: 20150705
